FAERS Safety Report 14781145 (Version 1)
Quarter: 2018Q2

REPORT INFORMATION
  Report Type: Spontaneous
  Country: US (occurrence: US)
  Receive Date: 20180419
  Receipt Date: 20180419
  Transmission Date: 20180711
  Serious: Yes (Disabling, Other)
  Sender: FDA-Public Use
  Company Number: US-REGENERON PHARMACEUTICALS, INC.-2018-21126

PATIENT

DRUGS (2)
  1. EYLEA [Suspect]
     Active Substance: AFLIBERCEPT
     Indication: DIABETIC RETINAL OEDEMA
     Dosage: 2.0 MG/ 0.05 ML
  2. EYLEA [Suspect]
     Active Substance: AFLIBERCEPT
     Dosage: 2.0 MG/ 0.05 ML, LAST DOSE
     Dates: start: 20180321, end: 20180321

REACTIONS (3)
  - Iridocyclitis [Recovering/Resolving]
  - Vitritis [Recovering/Resolving]
  - Blindness unilateral [Unknown]

NARRATIVE: CASE EVENT DATE: 20180409
